FAERS Safety Report 23577733 (Version 2)
Quarter: 2024Q2

REPORT INFORMATION
  Report Type: Spontaneous
  Country: JP (occurrence: None)
  Receive Date: 20240228
  Receipt Date: 20240401
  Transmission Date: 20240715
  Serious: Yes (Death, Other)
  Sender: FDA-Public Use
  Company Number: 2024A017841

PATIENT
  Age: 46 Year
  Sex: Male

DRUGS (2)
  1. IMFINZI [Suspect]
     Active Substance: DURVALUMAB
     Indication: Non-small cell lung cancer
     Route: 042
  2. IMJUDO [Suspect]
     Active Substance: TREMELIMUMAB\TREMELIMUMAB-ACTL
     Indication: Non-small cell lung cancer
     Route: 042

REACTIONS (4)
  - Haemoptysis [Fatal]
  - Pneumonia [Unknown]
  - Tracheal fistula [Unknown]
  - Anaemia [Unknown]
